FAERS Safety Report 5011790-1 (Version None)
Quarter: 2006Q2

REPORT INFORMATION
  Report Type: 
  Country: None (occurrence: None)
  Receive Date: 20060524
  Receipt Date: 20060524
  Transmission Date: 20061013
  Serious: Yes (Hospitalization)
  Sender: FDA-Public Use
  Company Number: None

PATIENT
  Age: 80 Year
  Sex: Male
  Weight: 56.8 kg

DRUGS (2)
  1. PREDNISONE [Suspect]
     Indication: GOUT
     Dosage: 60 MG/DAY X 5 DAYS PO
     Route: 048
     Dates: start: 20060309, end: 20060314
  2. COLCHICINE 0.1MG [Suspect]
     Indication: GOUT
     Dosage: 0.1 MG Q DAILY PRN PO
     Route: 048
     Dates: start: 20060309, end: 20060323

REACTIONS (11)
  - ANAEMIA [None]
  - BACK PAIN [None]
  - CONDITION AGGRAVATED [None]
  - DYSPNOEA [None]
  - ERYTHEMA [None]
  - FEELING HOT [None]
  - GOUT [None]
  - INTERNATIONAL NORMALISED RATIO INCREASED [None]
  - MUSCLE SPASMS [None]
  - OEDEMA PERIPHERAL [None]
  - PAIN IN EXTREMITY [None]
